FAERS Safety Report 4823621-0 (Version None)
Quarter: 2005Q4

REPORT INFORMATION
  Report Type: 
  Country: None (occurrence: None)
  Receive Date: 20051109
  Receipt Date: 20051028
  Transmission Date: 20060501
  Serious: Yes (Other)
  Sender: FDA-Public Use
  Company Number: GB-GILEAD-2005-0008873

PATIENT
  Sex: Male

DRUGS (5)
  1. VIREAD [Suspect]
     Route: 048
  2. ATAZANAVIR [Concomitant]
  3. RITONAVIR [Concomitant]
  4. ZIDOVUDINE [Concomitant]
  5. DAPSONE [Concomitant]

REACTIONS (5)
  - BLOOD CREATINE PHOSPHOKINASE INCREASED [None]
  - MYOSITIS [None]
  - PYREXIA [None]
  - RASH [None]
  - RHABDOMYOLYSIS [None]
